FAERS Safety Report 8680228 (Version 2)
Quarter: 2012Q4

REPORT INFORMATION
  Report Type: 
  Country: US (occurrence: US)
  Receive Date: 20120724
  Receipt Date: 20120927
  Transmission Date: 20130627
  Serious: Yes (Death)
  Sender: FDA-Public Use
  Company Number: US-GILEAD-2012-0058265

PATIENT
  Sex: Female

DRUGS (5)
  1. LETAIRIS [Suspect]
     Indication: PULMONARY HYPERTENSION
     Dosage: 10 mg, UNK
     Route: 048
     Dates: start: 2007
  2. LETAIRIS [Suspect]
     Indication: CONGESTIVE CARDIOMYOPATHY
  3. PREDNISONE [Concomitant]
  4. METHOTREXATE [Concomitant]
  5. HYDROXYCHLOROQUINE [Concomitant]

REACTIONS (2)
  - Arrhythmia [Fatal]
  - Congestive cardiomyopathy [Fatal]
